FAERS Safety Report 8573236-6 (Version None)
Quarter: 2012Q3

REPORT INFORMATION
  Report Type: 
  Country: None (occurrence: None)
  Receive Date: 20120806
  Receipt Date: 20120801
  Transmission Date: 20120928
  Serious: Yes (Hospitalization, Congenital Anomaly, Other)
  Sender: FDA-Public Use
  Company Number: US-PFIZER INC-2011270383

PATIENT
  Sex: Female

DRUGS (22)
  1. ZOLOFT [Suspect]
     Indication: ANXIETY
     Dosage: 100 MG, 1X/DAY
     Route: 064
     Dates: start: 20050523, end: 20050530
  2. ZOLOFT [Suspect]
     Dosage: 50 MG, 1X/DAY EVERY MORNING
     Route: 064
     Dates: start: 20080814
  3. XANAX [Concomitant]
     Indication: ANXIETY
     Dosage: 0.5 MG, DAILY AS NEEDED
     Route: 064
     Dates: start: 20070227
  4. XANAX [Concomitant]
     Indication: DEPRESSION
  5. PHENERGAN EXPECTORANT W/ CODEINE [Concomitant]
     Indication: COUGH
     Dosage: 5 ML, 4X/DAY (EVERY 6 HOURS AS NEEDED)
     Route: 064
     Dates: start: 20090309
  6. OMNICEF [Concomitant]
     Indication: COUGH
     Dosage: 300 MG, 2X/DAY
     Route: 064
     Dates: start: 20090323
  7. RHINOCORT [Concomitant]
     Indication: ACUTE SINUSITIS
     Dosage: 64 UG, 1X/DAY, EACH NOSTRIL
     Route: 064
     Dates: start: 20090302
  8. GUAIFENESIN [Concomitant]
     Indication: COUGH
     Dosage: UNK
     Route: 064
  9. GUAIFENESIN W/DEXTROMETHORPHAN [Concomitant]
     Indication: COUGH
     Dosage: UNK
     Route: 064
  10. NORGESTIMATE AND ETHINYL ESTRADIOL [Concomitant]
     Dosage: UNK
     Route: 064
     Dates: start: 20080530, end: 20090323
  11. ZITHROMAX [Concomitant]
     Indication: COUGH
     Dosage: 500 MG, 1X/DAY
     Route: 064
     Dates: start: 20081222, end: 20081222
  12. ZITHROMAX [Concomitant]
     Dosage: 250 MG, 1X/DAY
     Route: 064
     Dates: start: 20081223
  13. PAXIL [Concomitant]
     Indication: DEPRESSION
  14. ZOLOFT [Suspect]
     Indication: FATIGUE
     Dosage: 50 MG, 1X/DAY, EVERY NIGHT
     Route: 064
     Dates: start: 19980224, end: 19980324
  15. ZOLOFT [Suspect]
     Indication: DEPRESSION
     Dosage: 50 MG, 1X/DAY
     Route: 064
     Dates: start: 20050510, end: 20050522
  16. ZOLOFT [Suspect]
     Dosage: 100 MG, DAILY
     Route: 064
     Dates: start: 20050616
  17. CEFTIN [Concomitant]
     Indication: ACUTE SINUSITIS
     Dosage: 500 MG, 2X/DAY
     Route: 064
     Dates: start: 20090302, end: 20090323
  18. ZOLOFT [Suspect]
     Dosage: 50 MG, 1X/DAY AT BED TIME
     Route: 064
     Dates: start: 20050531, end: 20050615
  19. ZOLOFT [Suspect]
     Dosage: 150 MG, 1X/DAY (100MG TABLET, ONE AND HALF TABLET ONCE DAILY)
     Route: 064
     Dates: start: 20050711, end: 20060430
  20. ZOLOFT [Suspect]
     Dosage: 200 MG, 1X/DAY
     Route: 064
     Dates: start: 20060501
  21. PAXIL [Concomitant]
     Indication: ANXIETY
     Dosage: 40 MG, 1X/DAY
     Route: 064
     Dates: start: 20080814
  22. VICKS COUGH DROPS [Concomitant]
     Indication: COUGH
     Dosage: UNK
     Route: 064

REACTIONS (4)
  - RIGHT AORTIC ARCH [None]
  - FALLOT'S TETRALOGY [None]
  - HEART DISEASE CONGENITAL [None]
  - MATERNAL EXPOSURE DURING PREGNANCY [None]
